FAERS Safety Report 8333103-X (Version None)
Quarter: 2012Q2

REPORT INFORMATION
  Report Type: 
  Country: None (occurrence: None)
  Receive Date: 20120503
  Receipt Date: 20120501
  Transmission Date: 20120825
  Serious: Yes (Death)
  Sender: FDA-Public Use
  Company Number: PHHY2012NL025030

PATIENT
  Sex: Female

DRUGS (4)
  1. ZOMETA [Suspect]
     Indication: OSTEOPOROSIS
     Dosage: 4 MG/100 ML
     Route: 042
  2. ZOMETA [Suspect]
     Dosage: 4 MG/100 ML
     Route: 042
     Dates: start: 20120206
  3. ZOMETA [Suspect]
     Dosage: 4 MG/100 ML
     Route: 042
     Dates: start: 20101210
  4. ZOMETA [Suspect]
     Dosage: 4 MG/100 ML
     Route: 042
     Dates: start: 20120316

REACTIONS (2)
  - MALAISE [None]
  - DEATH [None]
